FAERS Safety Report 21978379 (Version 1)
Quarter: 2023Q1

REPORT INFORMATION
  Report Type: Spontaneous
  Country: US (occurrence: None)
  Receive Date: 20230209
  Receipt Date: 20230209
  Transmission Date: 20230417
  Serious: No
  Sender: FDA-Public Use
  Company Number: None

PATIENT
  Age: 67 Year
  Sex: Female
  Weight: 59.85 kg

DRUGS (7)
  1. IBANDRONATE SODIUM [Suspect]
     Active Substance: IBANDRONATE SODIUM
     Indication: Osteoporosis
     Dosage: OTHER QUANTITY : 3 TABLET(S);?OTHER FREQUENCY : ONCE A MONTH;?
     Route: 048
     Dates: start: 20230205, end: 20230205
  2. Propranolol (head tremor) [Concomitant]
  3. Prilosec [Concomitant]
  4. Levothyroxine Oxybutynin [Concomitant]
  5. VITAMIN D3 [Concomitant]
  6. CALCIUM [Concomitant]
  7. ZYRTEC [Concomitant]
     Active Substance: CETIRIZINE HYDROCHLORIDE

REACTIONS (7)
  - Bone pain [None]
  - Spinal pain [None]
  - Neck pain [None]
  - Chills [None]
  - Movement disorder [None]
  - Oesophageal pain [None]
  - Fatigue [None]

NARRATIVE: CASE EVENT DATE: 20230205
